FAERS Safety Report 17500661 (Version 1)
Quarter: 2020Q1

REPORT INFORMATION
  Report Type: Spontaneous
  Country: FR (occurrence: FR)
  Receive Date: 20200305
  Receipt Date: 20200305
  Transmission Date: 20200409
  Serious: Yes (Death, Life-Threatening, Hospitalization, Other)
  Sender: FDA-Public Use
  Company Number: FR-SUN PHARMACEUTICAL INDUSTRIES LTD-2020RR-239342

PATIENT
  Age: 32 Year
  Sex: Male

DRUGS (1)
  1. PARACETAMOL [Suspect]
     Active Substance: ACETAMINOPHEN
     Indication: OROPHARYNGEAL PAIN
     Dosage: ()
     Route: 065

REACTIONS (7)
  - Cardio-respiratory arrest [Unknown]
  - Neoplasm [Unknown]
  - Cerebral haematoma [Unknown]
  - Death [Fatal]
  - Seizure [Unknown]
  - Dysphagia [Unknown]
  - Asphyxia [Unknown]
